FAERS Safety Report 7417754-2 (Version None)
Quarter: 2011Q2

REPORT INFORMATION
  Report Type: 
  Country: None (occurrence: None)
  Receive Date: 20110415
  Receipt Date: 20110412
  Transmission Date: 20111010
  Serious: Yes (Death, Hospitalization, Other)
  Sender: FDA-Public Use
  Company Number: PHHY2011BR30755

PATIENT
  Sex: Male

DRUGS (1)
  1. EXELON [Suspect]
     Indication: MEMORY IMPAIRMENT
     Dosage: OF HALF TABLET IN THE MORNING AND HALF AT NIGHT

REACTIONS (5)
  - THROMBOSIS [None]
  - OEDEMA PERIPHERAL [None]
  - HYPERTENSION [None]
  - RESPIRATORY FAILURE [None]
  - PAIN IN EXTREMITY [None]
